FAERS Safety Report 23916800 (Version 1)
Quarter: 2024Q2

REPORT INFORMATION
  Report Type: Spontaneous
  Country: US (occurrence: None)
  Receive Date: 20240529
  Receipt Date: 20240529
  Transmission Date: 20240716
  Serious: No
  Sender: FDA-Public Use
  Company Number: None

PATIENT
  Age: 59 Year
  Sex: Female
  Weight: 74.25 kg

DRUGS (3)
  1. XIIDRA [Suspect]
     Active Substance: LIFITEGRAST
     Indication: Dry eye
     Dosage: OTHER QUANTITY : 1 DROP(S);?FREQUENCY : EVERY 12 HOURS;?
     Route: 047
     Dates: start: 20240308, end: 20240526
  2. VITAMINS [Concomitant]
     Active Substance: VITAMINS
  3. OMEGA 3 [Concomitant]
     Active Substance: CAPSAICIN

REACTIONS (2)
  - Sinusitis [None]
  - Therapy cessation [None]

NARRATIVE: CASE EVENT DATE: 20240330
